FAERS Safety Report 22136260 (Version 1)
Quarter: 2023Q1

REPORT INFORMATION
  Report Type: Spontaneous
  Country: US (occurrence: None)
  Receive Date: 20230323
  Receipt Date: 20230323
  Transmission Date: 20230418
  Serious: Yes (Hospitalization)
  Sender: FDA-Public Use
  Company Number: None

PATIENT
  Age: 75 Year
  Sex: Female
  Weight: 67.13 kg

DRUGS (6)
  1. CAPECITABINE [Suspect]
     Active Substance: CAPECITABINE
     Indication: Rectosigmoid cancer
     Dosage: FREQUENCY : TWICE A DAY;?
     Route: 048
  2. ALBUTEROL [Concomitant]
     Active Substance: ALBUTEROL
  3. AMLODIPINE [Concomitant]
     Active Substance: AMLODIPINE BESYLATE
  4. CENTRUM SILVER 50+ [Concomitant]
  5. VITAMIN D3 [Concomitant]
     Active Substance: CHOLECALCIFEROL
  6. MAGNESIUM OXIDE [Concomitant]
     Active Substance: MAGNESIUM OXIDE

REACTIONS (2)
  - Hospitalisation [None]
  - Therapy cessation [None]
